FAERS Safety Report 24632369 (Version 1)
Quarter: 2024Q4

REPORT INFORMATION
  Report Type: Spontaneous
  Country: CN (occurrence: CN)
  Receive Date: 20241118
  Receipt Date: 20241118
  Transmission Date: 20250114
  Serious: Yes (Life-Threatening, Other)
  Sender: TAKEDA
  Company Number: CN-HUTCHMED LIMITED-HMP2024CN02573

PATIENT
  Age: 78 Year
  Sex: Male

DRUGS (2)
  1. FRUQUINTINIB [Suspect]
     Active Substance: FRUQUINTINIB
     Indication: Colon cancer
     Dosage: 3 MILLIGRAM
     Dates: start: 20240906, end: 20240926
  2. TISLELIZUMAB [Concomitant]
     Active Substance: TISLELIZUMAB
     Indication: Colon cancer
     Dosage: 200 MILLIGRAM, Q3WEEKS
     Dates: start: 20240906, end: 20240906

REACTIONS (2)
  - Pulmonary embolism [Recovering/Resolving]
  - Off label use [Unknown]

NARRATIVE: CASE EVENT DATE: 20240906
